FAERS Safety Report 5391687-8 (Version None)
Quarter: 2007Q3

REPORT INFORMATION
  Report Type: 
  Country: None (occurrence: None)
  Receive Date: 20070717
  Receipt Date: 20070622
  Transmission Date: 20080115
  Serious: Yes (Death, Life-Threatening, Other)
  Sender: FDA-Public Use
  Company Number: E2020-01178-SPO-JP

PATIENT
  Age: 80 Year
  Sex: Female
  Weight: 31 kg

DRUGS (3)
  1. ARICEPT [Suspect]
     Indication: DEMENTIA ALZHEIMER'S TYPE
     Dosage: 3 MG, 1 IN 1 D, ORAL, 5 MG, 1 IN 1 D; ORAL
     Route: 048
     Dates: start: 20061222, end: 20070104
  2. ARICEPT [Suspect]
     Indication: DEMENTIA ALZHEIMER'S TYPE
     Dosage: 3 MG, 1 IN 1 D, ORAL, 5 MG, 1 IN 1 D; ORAL
     Route: 048
     Dates: start: 20070105, end: 20070402
  3. HEAVY MAGNESIUM OXIDE (MAGNESIUM OXIDE HEAVY) [Concomitant]

REACTIONS (7)
  - BRADYCARDIA [None]
  - CARDIO-RESPIRATORY ARREST [None]
  - DRUG INEFFECTIVE [None]
  - FALL [None]
  - HYPOKALAEMIA [None]
  - PNEUMONIA ASPIRATION [None]
  - SUDDEN DEATH [None]
